FAERS Safety Report 10032703 (Version 2)
Quarter: 2014Q2

REPORT INFORMATION
  Report Type: Spontaneous
  Country: JP (occurrence: JP)
  Receive Date: 20140324
  Receipt Date: 20140528
  Transmission Date: 20141212
  Serious: Yes (Death)
  Sender: FDA-Public Use
  Company Number: JP-GLAXOSMITHKLINE-B0978409A

PATIENT
  Age: 7 Decade
  Sex: Male

DRUGS (1)
  1. ZEFIX 100 [Suspect]
     Indication: HEPATITIS B
     Route: 048

REACTIONS (2)
  - B-cell lymphoma recurrent [Fatal]
  - Gene mutation [Unknown]
